FAERS Safety Report 14724024 (Version 7)
Quarter: 2019Q4

REPORT INFORMATION
  Report Type: Spontaneous
  Country: US (occurrence: US)
  Receive Date: 20180405
  Receipt Date: 20191025
  Transmission Date: 20200122
  Serious: Yes (Hospitalization, Other)
  Sender: FDA-Public Use
  Company Number: US-VIFOR (INTERNATIONAL) INC.-VIT-2018-03131

PATIENT
  Age: 64 Year
  Sex: Female

DRUGS (17)
  1. OMEPRAZOLE. [Concomitant]
     Active Substance: OMEPRAZOLE
  2. PANTOPRAZOLE SODIUM. [Concomitant]
     Active Substance: PANTOPRAZOLE SODIUM
  3. FLUTICASONE PROPIONATE. [Concomitant]
     Active Substance: FLUTICASONE PROPIONATE
  4. SYNTHROID [Concomitant]
     Active Substance: LEVOTHYROXINE SODIUM
  5. ESTRACE [Concomitant]
     Active Substance: ESTRADIOL
  6. MULTIVITAMIN ADULT [Concomitant]
  7. OMEGA 3 [Concomitant]
     Active Substance: OMEGA-3 FATTY ACIDS
  8. FUROSEMIDE. [Concomitant]
     Active Substance: FUROSEMIDE
  9. TYLENOL ARTHRITIS PAIN [Concomitant]
     Active Substance: ACETAMINOPHEN
  10. XANAX [Concomitant]
     Active Substance: ALPRAZOLAM
  11. TYLENOL PM EXTRA STRENGTH [Concomitant]
     Active Substance: ACETAMINOPHEN\DIPHENHYDRAMINE HYDROCHLORIDE
  12. HYDROCODONE-ACETAMINOPHEN [Concomitant]
     Active Substance: ACETAMINOPHEN\HYDROCODONE
  13. VELTASSA [Suspect]
     Active Substance: PATIROMER
     Indication: HYPERKALAEMIA
     Route: 048
     Dates: start: 20160707
  14. VIACTIV [Concomitant]
     Active Substance: CALCIUM\VITAMIN D\VITAMIN K5
  15. ASPIRIN. [Concomitant]
     Active Substance: ASPIRIN
  16. GLUCOSAMINE CHONDR 500 COMPLEX [Concomitant]
  17. PLAQUENIL [Concomitant]
     Active Substance: HYDROXYCHLOROQUINE SULFATE

REACTIONS (8)
  - Hospitalisation [Not Recovered/Not Resolved]
  - Gastroenteritis viral [Recovered/Resolved]
  - Pneumonia [Not Recovered/Not Resolved]
  - Foot operation [Unknown]
  - Product dose omission [Unknown]
  - Internal haemorrhage [Recovered/Resolved]
  - Pneumonia [Recovered/Resolved]
  - Fractured sacrum [Not Recovered/Not Resolved]

NARRATIVE: CASE EVENT DATE: 20180317
